FAERS Safety Report 19313670 (Version 2)
Quarter: 2025Q2

REPORT INFORMATION
  Report Type: Spontaneous
  Country: IT (occurrence: IT)
  Receive Date: 20210527
  Receipt Date: 20250625
  Transmission Date: 20250716
  Serious: Yes (Hospitalization)
  Sender: AUROBINDO
  Company Number: IT-LUNDBECK-DKLU3032614

PATIENT
  Age: 45 Year
  Sex: Male

DRUGS (13)
  1. CITALOPRAM [Suspect]
     Active Substance: CITALOPRAM
     Indication: Antidepressant therapy
     Dosage: 20 MILLIGRAM, ONCE A DAY
     Route: 065
  2. DELORAZEPAM [Suspect]
     Active Substance: DELORAZEPAM
     Indication: Product used for unknown indication
     Route: 065
  3. ESCITALOPRAM [Suspect]
     Active Substance: ESCITALOPRAM OXALATE
     Indication: Antidepressant therapy
     Route: 065
  4. QUETIAPINE [Suspect]
     Active Substance: QUETIAPINE
     Indication: Psychotic disorder
     Dosage: 75 MILLIGRAM, ONCE A DAY
     Route: 065
  5. QUETIAPINE [Suspect]
     Active Substance: QUETIAPINE
     Route: 065
  6. FLUOXETINE [Suspect]
     Active Substance: FLUOXETINE HYDROCHLORIDE
     Indication: Antidepressant therapy
     Route: 065
  7. LITHIUM SULFATE [Suspect]
     Active Substance: LITHIUM SULFATE
     Indication: Mood altered
     Dosage: 41.5 MILLIGRAM, ONCE A DAY
     Route: 065
  8. LITHIUM SULFATE [Suspect]
     Active Substance: LITHIUM SULFATE
     Route: 065
  9. TRIMIPRAMINE [Suspect]
     Active Substance: TRIMIPRAMINE
     Indication: Antidepressant therapy
     Route: 065
  10. DIVALPROEX SODIUM [Suspect]
     Active Substance: DIVALPROEX SODIUM
     Indication: Mood altered
     Dosage: 300 MILLIGRAM, ONCE A DAY
     Route: 065
  11. DIVALPROEX SODIUM [Suspect]
     Active Substance: DIVALPROEX SODIUM
     Route: 065
  12. SERTRALINE [Concomitant]
     Active Substance: SERTRALINE HYDROCHLORIDE
     Indication: Mood altered
     Route: 065
  13. OLANZAPINE [Concomitant]
     Active Substance: OLANZAPINE
     Indication: Product used for unknown indication
     Route: 065

REACTIONS (2)
  - Condition aggravated [Unknown]
  - Drug ineffective [Unknown]
